FAERS Safety Report 13376271 (Version 2)
Quarter: 2017Q2

REPORT INFORMATION
  Report Type: Spontaneous
  Country: US (occurrence: US)
  Receive Date: 20170328
  Receipt Date: 20170511
  Transmission Date: 20170830
  Serious: No
  Sender: FDA-Public Use
  Company Number: US-009507513-1703USA009334

PATIENT
  Age: 30 Year
  Sex: Female

DRUGS (4)
  1. SINGULAIR [Suspect]
     Active Substance: MONTELUKAST SODIUM
     Indication: ASTHMA
     Dosage: 10 MG, QD
     Route: 048
     Dates: start: 20170303
  2. PREDNISONE. [Suspect]
     Active Substance: PREDNISONE
     Indication: ASTHMA
     Dosage: 20 MG, BID
     Route: 048
     Dates: start: 20170316, end: 20170320
  3. VENTOLIN HFA [Suspect]
     Active Substance: ALBUTEROL SULFATE
     Indication: ASTHMA
     Dosage: 90 MICROGRAM, 12 INHALATIONS AS NEEDED
     Route: 055
     Dates: start: 20161213
  4. ASMANEX [Suspect]
     Active Substance: MOMETASONE FUROATE
     Indication: ASTHMA
     Dosage: 220 MICROGRAM, BID
     Route: 055
     Dates: start: 20170316

REACTIONS (4)
  - Asthma [Recovered/Resolved]
  - Drug dose omission [Unknown]
  - Exposure during pregnancy [Unknown]
  - Product container issue [Unknown]

NARRATIVE: CASE EVENT DATE: 201703
